FAERS Safety Report 18688107 (Version 1)
Quarter: 2020Q4

REPORT INFORMATION
  Report Type: Spontaneous
  Country: US (occurrence: US)
  Receive Date: 20201231
  Receipt Date: 20201231
  Transmission Date: 20210114
  Serious: No
  Sender: FDA-Public Use
  Company Number: US-ASTRAZENECA-2020SF70081

PATIENT
  Sex: Male
  Weight: 98.4 kg

DRUGS (2)
  1. BYDUREON BCISE [Suspect]
     Active Substance: EXENATIDE
     Indication: TYPE 2 DIABETES MELLITUS
     Route: 058
  2. IRON SUPPLEMENT [Concomitant]
     Active Substance: IRON
     Indication: BLOOD IRON DECREASED
     Dosage: UNKNOWN
     Route: 065

REACTIONS (5)
  - Intentional device misuse [Unknown]
  - Device defective [Unknown]
  - Blood iron decreased [Unknown]
  - Injection site haemorrhage [Unknown]
  - Product dose omission issue [Not Recovered/Not Resolved]
